FAERS Safety Report 11709616 (Version 2)
Quarter: 2015Q4

REPORT INFORMATION
  Report Type: Spontaneous
  Country: US (occurrence: US)
  Receive Date: 20151104
  Receipt Date: 20151110
  Transmission Date: 20160304
  Serious: No
  Sender: FDA-Public Use
  Company Number: US-ELI_LILLY_AND_COMPANY-US201107006220

PATIENT
  Age: 69 Year
  Sex: Female

DRUGS (3)
  1. FORTEO [Suspect]
     Active Substance: TERIPARATIDE
     Indication: OSTEOPOROSIS
     Dosage: 20 UG, QD
     Dates: start: 20110711
  2. FORTEO [Suspect]
     Active Substance: TERIPARATIDE
     Dosage: 20 UG, QD
  3. FORTEO [Suspect]
     Active Substance: TERIPARATIDE
     Dosage: 20 UG, QD
     Dates: end: 20110822

REACTIONS (19)
  - Depression [Recovering/Resolving]
  - Gait disturbance [Unknown]
  - Fall [Recovered/Resolved]
  - Injection site bruising [Unknown]
  - Dyspnoea [Unknown]
  - Chest pain [Unknown]
  - Gait disturbance [Recovering/Resolving]
  - Cold sweat [Unknown]
  - Feeling abnormal [Unknown]
  - Myalgia [Unknown]
  - Anxiety [Unknown]
  - Muscular weakness [Recovering/Resolving]
  - Asthenia [Recovering/Resolving]
  - Malaise [Unknown]
  - Contusion [Unknown]
  - Injection site pain [Unknown]
  - Dizziness [Recovering/Resolving]
  - Arthralgia [Unknown]
  - Insomnia [Unknown]

NARRATIVE: CASE EVENT DATE: 201107
